FAERS Safety Report 5167666-2 (Version None)
Quarter: 2006Q4

REPORT INFORMATION
  Report Type: 
  Country: None (occurrence: None)
  Receive Date: 20061201
  Receipt Date: 20061201
  Transmission Date: 20070319
  Serious: Yes (Other)
  Sender: FDA-Public Use
  Company Number: None

PATIENT
  Age: 62 Year
  Sex: Male
  Weight: 101 kg

DRUGS (9)
  1. ASPIRIN [Suspect]
     Indication: ANTICOAGULANT THERAPY
     Dosage: 1 BID PO
     Route: 048
     Dates: start: 20061001, end: 20061029
  2. ASPIRIN [Suspect]
     Indication: CORONARY ARTERY BYPASS
     Dosage: 1 BID PO
     Route: 048
     Dates: start: 20061001, end: 20061029
  3. ASPIRIN [Suspect]
     Indication: MYOCARDIAL INFARCTION
     Dosage: 1 BID PO
     Route: 048
     Dates: start: 20061001, end: 20061029
  4. COZAAR [Concomitant]
  5. CARVEDILOL -DILATREND- [Concomitant]
  6. CRESTOR [Concomitant]
  7. ALPRAZOLAM -ALPRALINE- [Concomitant]
  8. MULTI-BUFFERED ASPIRIN ASCOTYL [Concomitant]
  9. ASPIRIN [Concomitant]

REACTIONS (1)
  - GASTRIC HAEMORRHAGE [None]
